FAERS Safety Report 18562197 (Version 1)
Quarter: 2020Q4

REPORT INFORMATION
  Report Type: Other
  Country: CA (occurrence: CA)
  Receive Date: 20201201
  Receipt Date: 20201201
  Transmission Date: 20210114
  Serious: Yes (Hospitalization, Other)
  Sender: FDA-Public Use
  Company Number: CA-CELLTRION INC.-2020CA032651

PATIENT

DRUGS (18)
  1. ATORVASTATIN CALCIUM. [Concomitant]
     Active Substance: ATORVASTATIN CALCIUM
  2. FLOVENT [Concomitant]
     Active Substance: FLUTICASONE PROPIONATE
  3. ELTROXIN [Concomitant]
     Active Substance: LEVOTHYROXINE
  4. AZATHIOPRINE. [Concomitant]
     Active Substance: AZATHIOPRINE
  5. POTASSIUM [Concomitant]
     Active Substance: POTASSIUM
  6. RITUXIMAB (UNKNOWN) [Suspect]
     Active Substance: RITUXIMAB
     Indication: RHEUMATOID ARTHRITIS
     Dosage: 1000 MILLIGRAM, 1 EVERY 2 WEEKS
     Route: 042
  7. MAGNESIUM [Concomitant]
     Active Substance: MAGNESIUM
  8. ACETYLSALICYLIC ACID [Concomitant]
     Active Substance: ASPIRIN
  9. ESCITALOPRAM [Concomitant]
     Active Substance: ESCITALOPRAM OXALATE
  10. FLUTICASONE. [Concomitant]
     Active Substance: FLUTICASONE
  11. BENADRYL [Concomitant]
     Active Substance: DIPHENHYDRAMINE HYDROCHLORIDE
     Indication: PREMEDICATION
     Dosage: 50 MILLIGRAM
     Route: 048
  12. CANNABIS SATIVA [Concomitant]
     Active Substance: CANNABIS SATIVA FLOWERING TOP
  13. CEFUROXIME AXETIL. [Concomitant]
     Active Substance: CEFUROXIME AXETIL
  14. METHYLPREDNISOLONE SODIUM SUCCINATE. [Concomitant]
     Active Substance: METHYLPREDNISOLONE SODIUM SUCCINATE
     Indication: PREMEDICATION
     Dosage: 100 MILLIGRAM
     Route: 048
  15. METFORMIN [Concomitant]
     Active Substance: METFORMIN HYDROCHLORIDE
     Route: 065
  16. PANTOPRAZOLE [Concomitant]
     Active Substance: PANTOPRAZOLE
  17. PERINDOPRIL [Concomitant]
     Active Substance: PERINDOPRIL
  18. TYLENOL [Concomitant]
     Active Substance: ACETAMINOPHEN
     Indication: PREMEDICATION
     Dosage: 650 MILLIGRAM
     Route: 048

REACTIONS (8)
  - Blood pressure systolic abnormal [Unknown]
  - Cardiac disorder [Unknown]
  - Oxygen saturation decreased [Unknown]
  - Anaemia [Unknown]
  - Arthralgia [Unknown]
  - Pneumonia [Unknown]
  - Body temperature decreased [Unknown]
  - Weight decreased [Unknown]
